FAERS Safety Report 24860404 (Version 2)
Quarter: 2025Q1

REPORT INFORMATION
  Report Type: Report from Study
  Country: US (occurrence: US)
  Receive Date: 20250120
  Receipt Date: 20250128
  Transmission Date: 20250409
  Serious: Yes (Other)
  Sender: JAZZ
  Company Number: US-JAZZ PHARMACEUTICALS-2024-US-009314

PATIENT
  Sex: Female

DRUGS (16)
  1. XYWAV [Suspect]
     Active Substance: CALCIUM OXYBATE\MAGNESIUM OXYBATE\POTASSIUM OXYBATE\SODIUM OXYBATE
     Indication: Hypersomnia
     Dosage: 3 GRAM, BID
     Route: 048
  2. XYWAV [Suspect]
     Active Substance: CALCIUM OXYBATE\MAGNESIUM OXYBATE\POTASSIUM OXYBATE\SODIUM OXYBATE
     Dosage: 3.75 GRAM, BID
     Route: 048
  3. XYWAV [Suspect]
     Active Substance: CALCIUM OXYBATE\MAGNESIUM OXYBATE\POTASSIUM OXYBATE\SODIUM OXYBATE
     Route: 048
  4. CORTISONE ACETATE [Concomitant]
     Active Substance: CORTISONE ACETATE
     Indication: Product used for unknown indication
     Dates: start: 20240306
  5. ARMODAFINIL [Concomitant]
     Active Substance: ARMODAFINIL
     Dosage: 1 DOSAGE FORM, QD
     Route: 048
     Dates: start: 20240710
  6. ARMODAFINIL [Concomitant]
     Active Substance: ARMODAFINIL
     Dates: start: 20240901
  7. VITAMIN B12 [Concomitant]
     Active Substance: CYANOCOBALAMIN
  8. NAPROXEN [Concomitant]
     Active Substance: NAPROXEN
  9. MINERALS\VITAMINS [Concomitant]
     Active Substance: MINERALS\VITAMINS
  10. SUMATRIPTAN [Concomitant]
     Active Substance: SUMATRIPTAN
  11. SUNOSI [Concomitant]
     Active Substance: SOLRIAMFETOL
  12. CHOLECALCIFEROL [Concomitant]
     Active Substance: CHOLECALCIFEROL
  13. MODAFINIL [Concomitant]
     Active Substance: MODAFINIL
  14. NARATRIPTAN HYDROCHLORIDE [Concomitant]
     Active Substance: NARATRIPTAN HYDROCHLORIDE
     Indication: Migraine
     Dates: start: 20240618
  15. BUTALBITAL AND ACETAMINOPHEN [Concomitant]
     Active Substance: ACETAMINOPHEN\BUTALBITAL
     Indication: Migraine
     Dates: start: 20241219
  16. VITAMINS [Concomitant]
     Active Substance: VITAMINS
     Indication: Product used for unknown indication
     Dates: start: 20241222

REACTIONS (14)
  - Surgery [Unknown]
  - Affective disorder [Recovering/Resolving]
  - Feeling hot [Not Recovered/Not Resolved]
  - Irritability [Recovering/Resolving]
  - Depressed mood [Recovering/Resolving]
  - Hyperhidrosis [Not Recovered/Not Resolved]
  - Dizziness [Not Recovered/Not Resolved]
  - Somnolence [Not Recovered/Not Resolved]
  - Allergy to animal [Unknown]
  - Urinary incontinence [Recovered/Resolved]
  - Fatigue [Not Recovered/Not Resolved]
  - Illness [Unknown]
  - Blood pressure increased [Unknown]
  - Product dose omission issue [Unknown]
